FAERS Safety Report 4562872-X (Version None)
Quarter: 2005Q1

REPORT INFORMATION
  Report Type: 
  Country: None (occurrence: None)
  Receive Date: 20050121
  Receipt Date: 20041230
  Transmission Date: 20050727
  Serious: Yes (Death, Hospitalization)
  Sender: FDA-Public Use
  Company Number: EWC41241935

PATIENT
  Age: 70 Year
  Sex: Female
  Weight: 75 kg

DRUGS (7)
  1. PEMETREXED [Suspect]
     Indication: BREAST CANCER
     Dosage: 850 MG
     Dates: start: 20041104, end: 20041125
  2. DOXORUBICIN HCL [Suspect]
     Indication: BREAST CANCER
     Dosage: 85 MG OTHER
     Route: 050
     Dates: start: 20041104, end: 20041125
  3. FOLIC ACID [Concomitant]
  4. VITAMIN B-12 [Concomitant]
  5. DURAGESIC [Concomitant]
  6. AMARYL [Concomitant]
  7. ENARENAL (ENALAPRIL MALEATE) [Concomitant]

REACTIONS (6)
  - DISEASE PROGRESSION [None]
  - DRUG TOXICITY [None]
  - HYPOKALAEMIA [None]
  - POST PROCEDURAL DIARRHOEA [None]
  - PULMONARY THROMBOSIS [None]
  - RED BLOOD CELL COUNT DECREASED [None]
